FAERS Safety Report 9788763 (Version 1)
Quarter: 2013Q4

REPORT INFORMATION
  Report Type: Spontaneous
  Country: US (occurrence: US)
  Receive Date: 20131230
  Receipt Date: 20131230
  Transmission Date: 20140711
  Serious: No
  Sender: FDA-Public Use
  Company Number: US-GILEAD-2013-0090961

PATIENT
  Sex: Female

DRUGS (5)
  1. LETAIRIS [Suspect]
     Indication: PRODUCT USED FOR UNKNOWN INDICATION
     Dosage: 5 MG, QD
     Route: 065
     Dates: start: 20131023
  2. WARFARIN [Concomitant]
  3. METOPROLOL TARTRATE [Concomitant]
  4. AMIODARONE [Concomitant]
  5. NITROSTAT [Concomitant]

REACTIONS (2)
  - Hallucination, visual [Unknown]
  - Amnesia [Unknown]
